FAERS Safety Report 7219802-1 (Version None)
Quarter: 2011Q1

REPORT INFORMATION
  Report Type: 
  Country: None (occurrence: None)
  Receive Date: 20110111
  Receipt Date: 20110103
  Transmission Date: 20110831
  Serious: Yes (Other)
  Sender: FDA-Public Use
  Company Number: US-ABBOTT-11P-163-0694889-00

PATIENT
  Sex: Male
  Weight: 129.84 kg

DRUGS (2)
  1. DEPAKOTE ER [Suspect]
     Indication: PETIT MAL EPILEPSY
  2. DEPAKOTE [Suspect]
     Indication: PRODUCT USED FOR UNKNOWN INDICATION

REACTIONS (2)
  - PETIT MAL EPILEPSY [None]
  - WEIGHT INCREASED [None]
